FAERS Safety Report 5913320-6 (Version None)
Quarter: 2008Q4

REPORT INFORMATION
  Report Type: 
  Country: None (occurrence: None)
  Receive Date: 20081009
  Receipt Date: 20080925
  Transmission Date: 20090506
  Serious: Yes (Hospitalization)
  Sender: FDA-Public Use
  Company Number: FR-TYCO HEALTHCARE/MALLINCKRODT-T200801610

PATIENT

DRUGS (2)
  1. HEXABRIX [Suspect]
     Indication: ARTERIOGRAM
     Dates: start: 20080924, end: 20080924
  2. PHYSIOLOGICAL SERUM [Concomitant]
     Indication: DRUG USE FOR UNKNOWN INDICATION

REACTIONS (3)
  - APHASIA [None]
  - MOTOR DYSFUNCTION [None]
  - PARAESTHESIA ORAL [None]
